FAERS Safety Report 24252656 (Version 1)
Quarter: 2024Q3

REPORT INFORMATION
  Report Type: Spontaneous
  Country: KR (occurrence: KR)
  Receive Date: 20240827
  Receipt Date: 20240827
  Transmission Date: 20241016
  Serious: Yes (Other)
  Sender: AMGEN
  Company Number: KR-KYOWAKIRIN-2024KK019730

PATIENT
  Age: 69 Year
  Sex: Female

DRUGS (4)
  1. NEUPOGEN [Suspect]
     Active Substance: FILGRASTIM
     Indication: Angioimmunoblastic T-cell lymphoma
     Dosage: UNK
     Route: 065
  2. CYCLOPHOSPHAMIDE [Suspect]
     Active Substance: CYCLOPHOSPHAMIDE
     Indication: Angioimmunoblastic T-cell lymphoma
     Dosage: 750 MILLIGRAM/SQ. METER
     Route: 065
     Dates: start: 20230330, end: 20230714
  3. DOXORUBICIN HYDROCHLORIDE [Suspect]
     Active Substance: DOXORUBICIN HYDROCHLORIDE
     Indication: Angioimmunoblastic T-cell lymphoma
     Dosage: 50 MILLIGRAM/SQ. METER
     Route: 065
     Dates: start: 20230330, end: 20230714
  4. METHYLPREDNISOLONE [Suspect]
     Active Substance: METHYLPREDNISOLONE
     Indication: Angioimmunoblastic T-cell lymphoma
     Dosage: 100 MILLIGRAM
     Route: 065
     Dates: start: 20230330, end: 20230714

REACTIONS (2)
  - Neuropathy peripheral [Unknown]
  - COVID-19 pneumonia [Unknown]

NARRATIVE: CASE EVENT DATE: 20230814
